FAERS Safety Report 4808866-8 (Version None)
Quarter: 2005Q4

REPORT INFORMATION
  Report Type: 
  Country: None (occurrence: None)
  Receive Date: 20051025
  Receipt Date: 20051014
  Transmission Date: 20060501
  Serious: Yes (Other)
  Sender: FDA-Public Use
  Company Number: AU-JNJFOC-20051003090

PATIENT
  Sex: Female

DRUGS (2)
  1. RISPERDAL [Suspect]
     Indication: SCHIZOPHRENIA
     Route: 048
     Dates: start: 20030101
  2. RISPERDAL [Suspect]
     Dosage: (RECENTLY SWITCHED BACK TO ORAL)

REACTIONS (4)
  - BLOOD PROLACTIN INCREASED [None]
  - BREAST CANCER [None]
  - DRUG EXPOSURE DURING PREGNANCY [None]
  - MENSTRUATION IRREGULAR [None]
